FAERS Safety Report 14873166 (Version 3)
Quarter: 2019Q2

REPORT INFORMATION
  Report Type: Spontaneous
  Country: US (occurrence: US)
  Receive Date: 20180510
  Receipt Date: 20190509
  Transmission Date: 20190711
  Serious: Yes (Other)
  Sender: FDA-Public Use
  Company Number: US-ASTRAZENECA-2018SE52819

PATIENT
  Sex: Female

DRUGS (12)
  1. PRILOSEC OTC [Suspect]
     Active Substance: OMEPRAZOLE MAGNESIUM
     Route: 048
  2. PREVACID [Suspect]
     Active Substance: LANSOPRAZOLE
     Route: 048
  3. PREVACID 24 HR [Suspect]
     Active Substance: LANSOPRAZOLE
     Route: 065
  4. VIMOVO [Suspect]
     Active Substance: ESOMEPRAZOLE MAGNESIUM\NAPROXEN
     Route: 048
  5. DEXILANT [Suspect]
     Active Substance: DEXLANSOPRAZOLE
     Route: 065
  6. NEXIUM [Suspect]
     Active Substance: ESOMEPRAZOLE MAGNESIUM
     Route: 048
  7. NEXIUM 24HR [Suspect]
     Active Substance: ESOMEPRAZOLE MAGNESIUM
     Route: 048
  8. ACIPHEX [Suspect]
     Active Substance: RABEPRAZOLE SODIUM
     Route: 065
  9. PRILOSEC [Suspect]
     Active Substance: OMEPRAZOLE MAGNESIUM
     Route: 048
  10. PREVACID [Suspect]
     Active Substance: LANSOPRAZOLE
     Route: 065
  11. PROTONIX [Suspect]
     Active Substance: PANTOPRAZOLE SODIUM
     Route: 065
  12. PREVACID [Suspect]
     Active Substance: LANSOPRAZOLE
     Route: 048

REACTIONS (5)
  - Tubulointerstitial nephritis [Unknown]
  - Acute kidney injury [Unknown]
  - Renal failure [Unknown]
  - Chronic kidney disease [Unknown]
  - End stage renal disease [Unknown]

NARRATIVE: CASE EVENT DATE: 20120617
